FAERS Safety Report 17105200 (Version 1)
Quarter: 2019Q4

REPORT INFORMATION
  Report Type: Spontaneous
  Country: GB (occurrence: GB)
  Receive Date: 20191203
  Receipt Date: 20191203
  Transmission Date: 20200122
  Serious: Yes (Other)
  Sender: FDA-Public Use
  Company Number: GB-TEVA-2019-GB-1144291

PATIENT
  Age: 32 Year
  Sex: Male
  Weight: 133.35 kg

DRUGS (2)
  1. CLARITHROMYCIN EXTENDED RELEASE [Suspect]
     Active Substance: CLARITHROMYCIN
     Indication: TONSILLITIS BACTERIAL
     Dosage: 1000 MG
     Route: 048
     Dates: start: 20191023, end: 20191024
  2. ERYTHROMYCIN. [Concomitant]
     Active Substance: ERYTHROMYCIN

REACTIONS (2)
  - Anxiety [Recovered/Resolved with Sequelae]
  - Chest pain [Recovering/Resolving]

NARRATIVE: CASE EVENT DATE: 20191023
